FAERS Safety Report 10079841 (Version 2)
Quarter: 2014Q2

REPORT INFORMATION
  Report Type: Spontaneous
  Country: BR (occurrence: BR)
  Receive Date: 20140415
  Receipt Date: 20140520
  Transmission Date: 20141212
  Serious: Yes (Life-Threatening, Hospitalization, Other)
  Sender: FDA-Public Use
  Company Number: BR-009507513-1404BRA008540

PATIENT
  Age: 45 Year
  Sex: Female
  Weight: 56 kg

DRUGS (5)
  1. OVESTRION [Suspect]
     Indication: VULVOVAGINAL DRYNESS
     Dosage: UNK, BIW
     Route: 067
     Dates: start: 20140408
  2. PURAN T4 [Concomitant]
     Indication: THYROID DISORDER
     Dosage: UNK, UNKNOWN
  3. FLUOXETINE [Concomitant]
     Indication: ANXIETY
     Dosage: UNK, UNKNOWN
  4. TENADREN [Concomitant]
     Indication: BLOOD PRESSURE MANAGEMENT
     Dosage: UNK, UNKNOWN
  5. ISKEMIL [Concomitant]
     Indication: HEARING IMPAIRED
     Dosage: 6 MG, QPM
     Dates: start: 20140407, end: 20140408

REACTIONS (6)
  - Anaphylactic shock [Recovered/Resolved]
  - Blood pressure fluctuation [Recovered/Resolved]
  - Overdose [Unknown]
  - Dyspnoea [Not Recovered/Not Resolved]
  - Asthma [Not Recovered/Not Resolved]
  - Bronchitis [Not Recovered/Not Resolved]
